FAERS Safety Report 6501774-6 (Version None)
Quarter: 2009Q4

REPORT INFORMATION
  Report Type: 
  Country: None (occurrence: None)
  Receive Date: 20091216
  Receipt Date: 20091215
  Transmission Date: 20100525
  Serious: Yes (Other)
  Sender: FDA-Public Use
  Company Number: US-JNJFOC-20091100714

PATIENT
  Sex: Male

DRUGS (3)
  1. STELARA [Suspect]
     Indication: PSORIASIS
     Route: 058
  2. DIURETIC [Concomitant]
  3. CEPHALEXIN [Concomitant]
     Indication: PROPHYLAXIS

REACTIONS (4)
  - BLOOD GLUCOSE INCREASED [None]
  - GLUCOSE URINE PRESENT [None]
  - POLLAKIURIA [None]
  - PSORIATIC ARTHROPATHY [None]
